FAERS Safety Report 25910487 (Version 2)
Quarter: 2025Q4

REPORT INFORMATION
  Report Type: Spontaneous
  Country: US (occurrence: US)
  Receive Date: 20251012
  Receipt Date: 20251022
  Transmission Date: 20260118
  Serious: Yes (Other)
  Sender: BAXTER
  Company Number: US-BAXTER-2025BAX022453

PATIENT

DRUGS (1)
  1. DEXTROSE [Suspect]
     Active Substance: DEXTROSE MONOHYDRATE
     Indication: Hypoglycaemia
     Dosage: DEXTROSE INJECTION USP 500 ML; VIAFLEX IV; NDC NUMBER: 0303380023035; PRODUCT CODE: 2B0163Q
     Route: 042
     Dates: start: 20250928

REACTIONS (1)
  - Blood glucose increased [Recovered/Resolved]

NARRATIVE: CASE EVENT DATE: 20250929
